APPROVED DRUG PRODUCT: WARFARIN SODIUM
Active Ingredient: WARFARIN SODIUM
Strength: 3MG
Dosage Form/Route: TABLET;ORAL
Application: A040145 | Product #008
Applicant: BARR LABORATORIES INC
Approved: Nov 5, 1998 | RLD: No | RS: No | Type: DISCN